FAERS Safety Report 14085223 (Version 2)
Quarter: 2017Q4

REPORT INFORMATION
  Report Type: Report from Study
  Country: None (occurrence: TW)
  Receive Date: 20171013
  Receipt Date: 20171020
  Transmission Date: 20180321
  Serious: Yes (Death)
  Sender: FDA-Public Use
  Company Number: TW-ABBVIE-17K-153-2130478-00

PATIENT
  Age: 69 Year
  Sex: Female
  Weight: 48 kg

DRUGS (1)
  1. HUMIRA [Suspect]
     Active Substance: ADALIMUMAB
     Indication: RHEUMATOID ARTHRITIS
     Route: 058
     Dates: start: 20170505, end: 20171006

REACTIONS (2)
  - Injury [Fatal]
  - Road traffic accident [Fatal]

NARRATIVE: CASE EVENT DATE: 20171010
